FAERS Safety Report 20900101 (Version 1)
Quarter: 2022Q2

REPORT INFORMATION
  Report Type: Spontaneous
  Country: US (occurrence: US)
  Receive Date: 20220601
  Receipt Date: 20220601
  Transmission Date: 20220721
  Serious: No
  Sender: FDA-Public Use
  Company Number: US-BRISTOL-MYERS SQUIBB COMPANY-2022-049894

PATIENT
  Age: 49 Year
  Sex: Female
  Weight: 83.460 kg

DRUGS (1)
  1. ORENCIA [Suspect]
     Active Substance: ABATACEPT
     Indication: Rheumatoid arthritis
     Route: 058
     Dates: start: 20220526

REACTIONS (3)
  - Device malfunction [Unknown]
  - Product leakage [Unknown]
  - Needle issue [Unknown]
